FAERS Safety Report 14855094 (Version 2)
Quarter: 2018Q3

REPORT INFORMATION
  Report Type: Report from Study
  Country: US (occurrence: US)
  Receive Date: 20180507
  Receipt Date: 20180702
  Transmission Date: 20181010
  Serious: Yes (Hospitalization, Other)
  Sender: FDA-Public Use
  Company Number: US-ROCHE-1939118

PATIENT
  Sex: Male
  Weight: 95.34 kg

DRUGS (13)
  1. WARFARIN [Concomitant]
     Active Substance: WARFARIN
     Indication: ATRIAL FIBRILLATION
     Route: 048
     Dates: start: 2002
  2. ESBRIET [Suspect]
     Active Substance: PIRFENIDONE
     Dosage: THREE 267MG CAPSULES THREE TIMES A DAY
     Route: 048
     Dates: start: 20170417
  3. METFORMIN HCL [Concomitant]
     Active Substance: METFORMIN HYDROCHLORIDE
     Indication: TYPE 2 DIABETES MELLITUS
     Route: 048
     Dates: start: 2002
  4. ATENOLOL. [Concomitant]
     Active Substance: ATENOLOL
     Route: 065
  5. HYDROMET (HOMATROPINE METHYLBROMIDE/HYDROCODONE BITARTRATE) [Concomitant]
  6. ESBRIET [Suspect]
     Active Substance: PIRFENIDONE
     Indication: IDIOPATHIC PULMONARY FIBROSIS
     Dosage: TAKE THREE CAPSULE BY MOUTH THREE TIMES A DAY WITH FOOD
     Route: 048
     Dates: start: 20170426
  7. ESBRIET [Suspect]
     Active Substance: PIRFENIDONE
     Route: 048
     Dates: start: 201704, end: 20180421
  8. ESBRIET [Suspect]
     Active Substance: PIRFENIDONE
     Dosage: 3 CAPSULES WITH FOOD; ONGOING : UNKNOWN.
     Route: 048
  9. GLIMEPIRIDE. [Concomitant]
     Active Substance: GLIMEPIRIDE
     Route: 065
  10. WARFARIN SODIUM. [Concomitant]
     Active Substance: WARFARIN SODIUM
     Route: 065
  11. ESBRIET [Suspect]
     Active Substance: PIRFENIDONE
     Route: 048
  12. ESBRIET [Suspect]
     Active Substance: PIRFENIDONE
     Dosage: 1 TABLET 3 TIMES PER DAY.
     Route: 048
     Dates: start: 20180605, end: 20180609
  13. AZITHROMYCIN ANHYDROUS. [Concomitant]
     Active Substance: AZITHROMYCIN ANHYDROUS

REACTIONS (4)
  - Dermatitis exfoliative [Recovering/Resolving]
  - Localised infection [Recovering/Resolving]
  - Rash [Not Recovered/Not Resolved]
  - Photosensitivity reaction [Unknown]
